FAERS Safety Report 5418573-9 (Version None)
Quarter: 2007Q3

REPORT INFORMATION
  Report Type: 
  Country: None (occurrence: None)
  Receive Date: 20070817
  Receipt Date: 20070808
  Transmission Date: 20080115
  Serious: Yes (Death)
  Sender: FDA-Public Use
  Company Number: JP-SHR-JP-2007-029817

PATIENT
  Age: 82 Year
  Sex: Male

DRUGS (8)
  1. ARTIST [Concomitant]
     Dosage: UNK, UNK
     Route: 048
     Dates: start: 20020301, end: 20060201
  2. RENIVACE [Concomitant]
     Dosage: UNK, UNK
     Route: 048
     Dates: start: 20020301, end: 20070201
  3. LASIX [Concomitant]
     Dosage: UNK, UNK
     Route: 048
     Dates: start: 20020301, end: 20070201
  4. LIPITOR [Concomitant]
     Dosage: UNK, UNK
     Route: 048
     Dates: start: 20020301, end: 20060501
  5. WARFARIN [Concomitant]
     Dosage: UNK, UNK
     Route: 048
     Dates: start: 20020301, end: 20070201
  6. FAMOTIDINE [Concomitant]
     Dosage: UNK, UNK
     Route: 048
     Dates: start: 20040901, end: 20060501
  7. SOTALOL HCL [Suspect]
     Indication: VENTRICULAR TACHYCARDIA
     Dosage: 40 MG, UNK
     Route: 048
     Dates: start: 20051014, end: 20061126
  8. SOTALOL HCL [Suspect]
     Dosage: 80 MG, UNK
     Route: 048
     Dates: start: 20061127, end: 20070228

REACTIONS (1)
  - ELECTROMECHANICAL DISSOCIATION [None]
